FAERS Safety Report 9525401 (Version 1)
Quarter: 2013Q3

REPORT INFORMATION
  Report Type: Report from Study
  Country: CA (occurrence: CA)
  Receive Date: 20130916
  Receipt Date: 20130916
  Transmission Date: 20140515
  Serious: Yes (Hospitalization)
  Sender: FDA-Public Use
  Company Number: CA-JNJFOC-20130903432

PATIENT
  Sex: Male
  Weight: 49.9 kg

DRUGS (3)
  1. REMICADE [Suspect]
     Indication: CROHN^S DISEASE
     Route: 042
     Dates: start: 2012
  2. BUDESONIDE [Concomitant]
     Route: 048
     Dates: start: 20120315
  3. IMURAN [Concomitant]
     Route: 048
     Dates: start: 20110718

REACTIONS (1)
  - Intestinal obstruction [Recovering/Resolving]
